FAERS Safety Report 6818328-4 (Version None)
Quarter: 2010Q3

REPORT INFORMATION
  Report Type: 
  Country: None (occurrence: None)
  Receive Date: 20100706
  Receipt Date: 20071118
  Transmission Date: 20110219
  Serious: No
  Sender: FDA-Public Use
  Company Number: US-PFIZER INC-2007097394

PATIENT
  Sex: Female

DRUGS (2)
  1. ZITHROMAX [Suspect]
     Indication: EAR PAIN
     Dates: start: 20070901, end: 20070901
  2. DELSYM [Concomitant]

REACTIONS (1)
  - RASH [None]
